FAERS Safety Report 15075635 (Version 1)
Quarter: 2018Q2

REPORT INFORMATION
  Report Type: Spontaneous
  Country: US (occurrence: US)
  Receive Date: 20180627
  Receipt Date: 20180627
  Transmission Date: 20180711
  Serious: No
  Sender: FDA-Public Use
  Company Number: US-SA-2018SA161003

PATIENT
  Age: 70 Year
  Sex: Male

DRUGS (7)
  1. AUBAGIO [Suspect]
     Active Substance: TERIFLUNOMIDE
     Dosage: 1 DF, QD
     Route: 048
     Dates: start: 20160330
  2. LISINOPRIL. [Concomitant]
     Active Substance: LISINOPRIL
  3. LOSARTAN. [Concomitant]
     Active Substance: LOSARTAN
  4. BACLOFEN. [Concomitant]
     Active Substance: BACLOFEN
  5. FISH OIL [Concomitant]
     Active Substance: FISH OIL
  6. POTASSIUM GLUCONATE [Concomitant]
     Active Substance: POTASSIUM GLUCONATE
  7. GABAPENTIN. [Concomitant]
     Active Substance: GABAPENTIN

REACTIONS (2)
  - Gait disturbance [Unknown]
  - Loss of personal independence in daily activities [Unknown]
